FAERS Safety Report 12929205 (Version 1)
Quarter: 2016Q4

REPORT INFORMATION
  Report Type: Spontaneous
  Country: FR (occurrence: FR)
  Receive Date: 20161110
  Receipt Date: 20161110
  Transmission Date: 20170207
  Serious: Yes (Disabling)
  Sender: FDA-Public Use
  Company Number: FR-PFIZER INC-2016507311

PATIENT
  Age: 75 Year
  Sex: Female

DRUGS (4)
  1. CARBOPLATINE HOSPIRA [Suspect]
     Active Substance: CARBOPLATIN
     Indication: OVARIAN EPITHELIAL CANCER
     Dosage: 80 MG/M2, CYCLIC ON DAY 1, DAY 8, AND DAY 15
     Route: 042
     Dates: start: 20160523
  2. PACLITAXEL. [Suspect]
     Active Substance: PACLITAXEL
     Dosage: DOSE DECREASE OF 75%
     Route: 042
     Dates: start: 20160704, end: 20160829
  3. CARBOPLATINE HOSPIRA [Suspect]
     Active Substance: CARBOPLATIN
     Dosage: DOSE DECREASE OF 75%
     Route: 042
     Dates: start: 20160829, end: 20160919
  4. PACLITAXEL. [Suspect]
     Active Substance: PACLITAXEL
     Indication: OVARIAN EPITHELIAL CANCER
     Dosage: 80 MG/M2, CYCLIC ON DAY 1, DAY 8, AND DAY 15
     Route: 042
     Dates: start: 20160523

REACTIONS (6)
  - Neuropathy peripheral [Not Recovered/Not Resolved]
  - Dyspnoea [Unknown]
  - Pain [Not Recovered/Not Resolved]
  - Fatigue [Unknown]
  - Erythema [Unknown]
  - Mobility decreased [Not Recovered/Not Resolved]

NARRATIVE: CASE EVENT DATE: 2016
